FAERS Safety Report 9044575 (Version 1)
Quarter: 2013Q1

REPORT INFORMATION
  Report Type: Report from Study
  Country: US (occurrence: US)
  Receive Date: 20130130
  Receipt Date: 20130130
  Transmission Date: 20140127
  Serious: No
  Sender: FDA-Public Use
  Company Number: US-ABBOTT-12P-163-0956934-00

PATIENT
  Age: 64 Year
  Sex: Male

DRUGS (4)
  1. HUMIRA 40 MG/ 0.8 ML PRE-FILLED SYRINGE [Suspect]
     Indication: PSORIASIS
     Route: 058
     Dates: start: 2011
  2. ASPIRIN [Concomitant]
     Indication: CARDIOVASCULAR DISORDER
  3. CRESTOR [Concomitant]
     Indication: CARDIOVASCULAR DISORDER
  4. EFFIENT [Concomitant]
     Indication: CARDIOVASCULAR DISORDER

REACTIONS (2)
  - Asthenia [Not Recovered/Not Resolved]
  - Arthralgia [Not Recovered/Not Resolved]
